FAERS Safety Report 19675730 (Version 1)
Quarter: 2021Q3

REPORT INFORMATION
  Report Type: Spontaneous
  Country: FR (occurrence: FR)
  Receive Date: 20210809
  Receipt Date: 20210809
  Transmission Date: 20211014
  Serious: Yes (Other)
  Sender: FDA-Public Use
  Company Number: FR-ACCORD-234741

PATIENT
  Age: 83 Year
  Sex: Female

DRUGS (7)
  1. LETROZOLE. [Suspect]
     Active Substance: LETROZOLE
     Indication: BREAST CANCER
     Route: 048
     Dates: start: 20190515, end: 20210226
  2. POTASSIUM [Concomitant]
     Active Substance: POTASSIUM
  3. IBRANCE [Suspect]
     Active Substance: PALBOCICLIB
     Indication: BREAST CANCER
     Dosage: 125 MG 1 TIME PER DAY THEN 75 MG ONCE PER DAY
     Route: 048
     Dates: start: 20190515
  4. BISOPROLOL [Concomitant]
     Active Substance: BISOPROLOL
  5. OXAZEPAM. [Concomitant]
     Active Substance: OXAZEPAM
  6. LANSOPRAZOLE. [Concomitant]
     Active Substance: LANSOPRAZOLE
  7. VENLAFAXINE/VENLAFAXINE HYDROCHLORIDE [Concomitant]
     Active Substance: VENLAFAXINE HYDROCHLORIDE

REACTIONS (2)
  - Herpes zoster [Recovering/Resolving]
  - Scleroderma [Recovering/Resolving]

NARRATIVE: CASE EVENT DATE: 20201201
